FAERS Safety Report 25844695 (Version 1)
Quarter: 2025Q3

REPORT INFORMATION
  Report Type: Report from Study
  Country: US (occurrence: US)
  Receive Date: 20250925
  Receipt Date: 20250925
  Transmission Date: 20251020
  Serious: No
  Sender: SUNOVION
  Company Number: US-SUMITOMO PHARMA SWITZERLAND GMBH-2025SPA012027

PATIENT
  Age: 76 Year
  Sex: Male

DRUGS (10)
  1. ORGOVYX [Suspect]
     Active Substance: RELUGOLIX
     Indication: Prostate cancer
     Route: 048
  2. ORGOVYX [Suspect]
     Active Substance: RELUGOLIX
     Route: 048
  3. ACIDOPHILUS [Concomitant]
     Active Substance: LACTOBACILLUS ACIDOPHILUS
  4. LACTOBACILLUS ACIDOPHILUS [Concomitant]
     Active Substance: LACTOBACILLUS ACIDOPHILUS
  5. BENZONATATE [Concomitant]
     Active Substance: BENZONATATE
  6. CANNABIDIOL\HERBALS [Concomitant]
     Active Substance: CANNABIDIOL\HERBALS
  7. PRAZOSIN [Concomitant]
     Active Substance: PRAZOSIN
  8. FEXOFENADINE [Concomitant]
     Active Substance: FEXOFENADINE HYDROCHLORIDE
  9. TADALAFIL [Concomitant]
     Active Substance: TADALAFIL
  10. GLUCOSAMINE HYDROCHLORIDE\SODIUM CHONDROITIN SULFATE [Concomitant]
     Active Substance: GLUCOSAMINE HYDROCHLORIDE\SODIUM CHONDROITIN SULFATE

REACTIONS (1)
  - Paraesthesia oral [Unknown]

NARRATIVE: CASE EVENT DATE: 20250913
